FAERS Safety Report 7783178-1 (Version None)
Quarter: 2011Q3

REPORT INFORMATION
  Report Type: 
  Country: None (occurrence: None)
  Receive Date: 20110928
  Receipt Date: 20110922
  Transmission Date: 20111222
  Serious: Yes (Life-Threatening)
  Sender: FDA-Public Use
  Company Number: US-BRISTOL-MYERS SQUIBB COMPANY-16088726

PATIENT
  Age: 50 Year
  Sex: Male

DRUGS (2)
  1. AMPHOTERICIN B [Suspect]
     Indication: MENINGITIS CRYPTOCOCCAL
     Dosage: REG 2
     Route: 041
     Dates: end: 20110829
  2. FLUCONAZOLE [Suspect]
     Route: 048
     Dates: start: 20110722, end: 20110803

REACTIONS (1)
  - NEUTROPENIA [None]
